FAERS Safety Report 7206776-2 (Version None)
Quarter: 2010Q4

REPORT INFORMATION
  Report Type: 
  Country: None (occurrence: None)
  Receive Date: 20101217
  Receipt Date: 20101209
  Transmission Date: 20110411
  Serious: Yes (Hospitalization)
  Sender: FDA-Public Use
  Company Number: 2010SP052116

PATIENT
  Age: 55 Year
  Sex: Female

DRUGS (3)
  1. INTRON A [Suspect]
     Dosage: SC; SC
     Route: 058
     Dates: start: 20100816, end: 20100914
  2. INTRON A [Suspect]
     Dosage: SC; SC
     Route: 058
     Dates: start: 20100915
  3. REBETOL [Suspect]
     Indication: HEPATITIS C
     Dosage: 1000 MG PO
     Dates: start: 20100816

REACTIONS (1)
  - SYNCOPE [None]
